FAERS Safety Report 12705970 (Version 2)
Quarter: 2016Q3

REPORT INFORMATION
  Report Type: Spontaneous
  Country: JP (occurrence: JP)
  Receive Date: 20160901
  Receipt Date: 20160906
  Transmission Date: 20161109
  Serious: Yes (Hospitalization, Other)
  Sender: FDA-Public Use
  Company Number: JP-INDICUS PHARMA-000445

PATIENT
  Age: 64 Year
  Sex: Female
  Weight: 77.2 kg

DRUGS (10)
  1. VOGLIBOSE [Concomitant]
     Active Substance: VOGLIBOSE
     Indication: TYPE 2 DIABETES MELLITUS
  2. EXENATIDE [Concomitant]
     Active Substance: EXENATIDE
     Indication: TYPE 2 DIABETES MELLITUS
  3. POLAPREZINC [Concomitant]
     Active Substance: POLAPREZINC
  4. OLMESARTAN/OLMESARTAN MEDOXOMIL [Suspect]
     Active Substance: OLMESARTAN
     Indication: PRODUCT USED FOR UNKNOWN INDICATION
  5. AMLODIPINE [Concomitant]
     Active Substance: AMLODIPINE BESYLATE
  6. ROSUVASTATIN/ROSUVASTATIN CALCIUM [Concomitant]
  7. METFORMIN [Suspect]
     Active Substance: METFORMIN HYDROCHLORIDE
     Indication: TYPE 2 DIABETES MELLITUS
  8. CANDESARTAN/CANDESARTAN CILEXETIL [Suspect]
     Active Substance: CANDESARTAN
     Indication: PRODUCT USED FOR UNKNOWN INDICATION
  9. GLIMEPIRIDE. [Suspect]
     Active Substance: GLIMEPIRIDE
     Indication: TYPE 2 DIABETES MELLITUS
  10. TOCOPHEROL [Concomitant]
     Active Substance: TOCOPHEROL

REACTIONS (10)
  - Hypoglycaemia [Recovering/Resolving]
  - Decreased appetite [None]
  - Leukocytosis [None]
  - Urinary tract infection [Recovering/Resolving]
  - Fatigue [None]
  - Dehydration [None]
  - Peripheral circulatory failure [Unknown]
  - Renal impairment [Recovering/Resolving]
  - Escherichia urinary tract infection [None]
  - Lactic acidosis [Recovered/Resolved]
